FAERS Safety Report 6610832-7 (Version None)
Quarter: 2010Q1

REPORT INFORMATION
  Report Type: 
  Country: None (occurrence: None)
  Receive Date: 20100219
  Receipt Date: 20100211
  Transmission Date: 20100710
  Serious: Yes (Hospitalization, Other)
  Sender: FDA-Public Use
  Company Number: 8036460

PATIENT
  Sex: Female
  Weight: 75 kg

DRUGS (17)
  1. KEPPRA [Suspect]
     Indication: CONVULSION
     Dosage: (1000 MG, DAILY ORAL)
     Route: 048
     Dates: start: 20080501, end: 20080718
  2. TRAMAL /00599201/ (TRAMAL DROPS) (NOT SPECIFIED) [Suspect]
     Indication: PAIN
     Dosage: (20 DROPS DAILY 1-1-1 ORAL)
     Route: 048
  3. NOVAMINSULFON (NOVAMINE SULFONE DROPS) (NOT SPECIFIED) [Suspect]
     Dosage: (3X40, 3X20, 3X30 ORAL), (3X30/DAY)
     Route: 048
     Dates: start: 20080708, end: 20080717
  4. NOVAMINSULFON (NOVAMINE SULFONE DROPS) (NOT SPECIFIED) [Suspect]
     Dosage: (3X40, 3X20, 3X30 ORAL), (3X30/DAY)
     Route: 048
     Dates: start: 20080612
  5. IBUPROFEN [Concomitant]
  6. LASIX [Concomitant]
  7. NEXIUM [Concomitant]
  8. CORDAREX [Concomitant]
  9. DELIX [Concomitant]
  10. BELOC-ZOK [Concomitant]
  11. TORSEMIDE [Concomitant]
  12. L-THYROXIN [Concomitant]
  13. CLEXANE [Concomitant]
  14. AQUAPHOR [Concomitant]
  15. ORGARAN [Concomitant]
  16. FRESUBIN [Concomitant]
  17. BEPANTHEN [Concomitant]

REACTIONS (2)
  - HEPARIN-INDUCED THROMBOCYTOPENIA [None]
  - STEVENS-JOHNSON SYNDROME [None]
